FAERS Safety Report 20181476 (Version 1)
Quarter: 2021Q4

REPORT INFORMATION
  Report Type: Spontaneous
  Country: US (occurrence: None)
  Receive Date: 20211213
  Receipt Date: 20211213
  Transmission Date: 20220303
  Serious: Yes (Hospitalization)
  Sender: FDA-Public Use
  Company Number: None

PATIENT
  Age: 55 Year
  Sex: Female

DRUGS (25)
  1. SPRYCEL [Suspect]
     Active Substance: DASATINIB
     Indication: Chronic myeloid leukaemia
     Route: 048
     Dates: start: 20190216
  2. AMOXICILLIN [Concomitant]
     Active Substance: AMOXICILLIN
  3. ATORVASTATIN [Concomitant]
  4. BREO ELLIPTA INH [Concomitant]
  5. BRILINTA TAB [Concomitant]
  6. FARXIGA TAB [Concomitant]
  7. FERROUS SULF [Concomitant]
  8. GLYBURIDE [Concomitant]
  9. LASIX [Concomitant]
  10. LEVOTHYROXIN TAB [Concomitant]
  11. LISINOPRIL AND HYDROCHLOROTHIAZIDE [Concomitant]
     Active Substance: HYDROCHLOROTHIAZIDE\LISINOPRIL
  12. LISINOPRIL [Concomitant]
     Active Substance: LISINOPRIL
  13. METOPROL [Concomitant]
  14. NOVOLIN R INJ RELION [Concomitant]
  15. OZEMPIC INJ [Concomitant]
  16. SPRYCEL TAB [Concomitant]
  17. TORSEMIDE [Concomitant]
  18. TOUJEO SOLO INJ [Concomitant]
  19. TRAMADOL HCL [Concomitant]
  20. TRULICITY INJ [Concomitant]
  21. VASCEPA CAP [Concomitant]
  22. VENTOLIN HFA [Concomitant]
  23. VITAMIN C [Concomitant]
  24. VITAMIN D3CHW [Concomitant]
  25. ZINC [Concomitant]

REACTIONS (1)
  - Myocardial infarction [None]

NARRATIVE: CASE EVENT DATE: 20211123
